FAERS Safety Report 9977793 (Version 2)
Quarter: 2014Q1

REPORT INFORMATION
  Report Type: Report from Study
  Country: US (occurrence: US)
  Receive Date: 20140306
  Receipt Date: 20140306
  Transmission Date: 20141002
  Serious: No
  Sender: FDA-Public Use
  Company Number: US-ABBVIE-13P-163-1158520-00

PATIENT
  Age: 57 Year
  Sex: Male

DRUGS (16)
  1. HUMIRA [Suspect]
     Indication: CROHN^S DISEASE
     Dates: start: 20131009, end: 20131009
  2. HUMIRA [Suspect]
  3. AZOPT [Concomitant]
     Indication: GLAUCOMA
     Dosage: 1 GTT OU
  4. PROCRIT [Concomitant]
     Indication: HAEMOLYTIC ANAEMIA
     Dosage: WHEN HEMGLOBIN UNDER 9
     Route: 050
  5. TRAVATAN [Concomitant]
     Indication: MACULAR DEGENERATION
     Dosage: 1 GTT OU  AT HS
  6. IRON [Concomitant]
     Indication: HAEMOLYTIC ANAEMIA
  7. VITAMIN D3 [Concomitant]
     Indication: PRODUCT USED FOR UNKNOWN INDICATION
  8. FOLIC ACID [Concomitant]
     Indication: PRODUCT USED FOR UNKNOWN INDICATION
  9. DICYCLOMINE [Concomitant]
     Indication: ABDOMINAL RIGIDITY
     Dosage: TID PRN
  10. PYRIDIUM [Concomitant]
     Indication: CYSTITIS INTERSTITIAL
  11. FLUOXETINE [Concomitant]
     Indication: DEPRESSION
  12. TAMSULOSIN HCL [Concomitant]
     Indication: BLADDER NECK OBSTRUCTION
  13. TAMSULOSIN HCL [Concomitant]
     Indication: BLADDER NECK OBSTRUCTION
  14. BACLOFEN [Concomitant]
     Indication: BLADDER NECK OBSTRUCTION
  15. PLAVIX [Concomitant]
     Indication: ANTICOAGULANT THERAPY
  16. PLAVIX [Concomitant]
     Indication: CYSTITIS INTERSTITIAL

REACTIONS (3)
  - Flatulence [Not Recovered/Not Resolved]
  - Crohn^s disease [Recovering/Resolving]
  - Contusion [Unknown]
